FAERS Safety Report 6693699-0 (Version None)
Quarter: 2010Q2

REPORT INFORMATION
  Report Type: 
  Country: None (occurrence: None)
  Receive Date: 20100421
  Receipt Date: 20100408
  Transmission Date: 20101027
  Serious: Yes (Life-Threatening, Other)
  Sender: FDA-Public Use
  Company Number: 2010AC000255

PATIENT
  Sex: Male

DRUGS (1)
  1. DIGOXIN [Suspect]
     Dosage: PO
     Route: 048

REACTIONS (6)
  - ECONOMIC PROBLEM [None]
  - HEART TRANSPLANT [None]
  - MULTIPLE INJURIES [None]
  - PAIN [None]
  - PARTNER STRESS [None]
  - UNEVALUABLE EVENT [None]
